FAERS Safety Report 23093299 (Version 2)
Quarter: 2023Q4

REPORT INFORMATION
  Report Type: Report from Study
  Country: US (occurrence: US)
  Receive Date: 20231022
  Receipt Date: 20231025
  Transmission Date: 20240109
  Serious: No
  Sender: FDA-Public Use
  Company Number: US-002147023-NVSC2023US226411

PATIENT
  Sex: Female

DRUGS (1)
  1. KESIMPTA [Suspect]
     Active Substance: OFATUMUMAB
     Indication: Multiple sclerosis
     Dosage: UNK (INJECT 1 PEN (20MG) SUBCUTANEOUSLY MONTHLY AS DIRECTED)
     Route: 058

REACTIONS (3)
  - Fatigue [Unknown]
  - Urge incontinence [Unknown]
  - Therapeutic response shortened [Unknown]
